FAERS Safety Report 8903691 (Version 3)
Quarter: 2012Q4

REPORT INFORMATION
  Report Type: 
  Country: US (occurrence: US)
  Receive Date: 20121113
  Receipt Date: 20121226
  Transmission Date: 20130627
  Serious: No
  Sender: FDA-Public Use
  Company Number: US-PFIZER INC-2012279686

PATIENT
  Age: 48 Year
  Sex: Male
  Weight: 90.7 kg

DRUGS (5)
  1. DEPO-TESTOSTERONE [Suspect]
     Indication: TESTOSTERONE LOW
     Dosage: 200-250 (no unit provided), every two and half weeks
  2. DEPO-TESTOSTERONE [Suspect]
     Dosage: 300 mg, every 3 weeks
     Route: 030
     Dates: start: 201209
  3. LIPITOR [Concomitant]
     Dosage: 40 mg, 1x/day
  4. ADDERALL [Concomitant]
     Dosage: 30 mg, 1x/day
  5. OXYCONTIN [Concomitant]
     Dosage: 40 mg, 2x/day

REACTIONS (1)
  - Drug ineffective [Unknown]
